FAERS Safety Report 5606683-2 (Version None)
Quarter: 2008Q1

REPORT INFORMATION
  Report Type: 
  Country: None (occurrence: None)
  Receive Date: 20080129
  Receipt Date: 20070711
  Transmission Date: 20080703
  Serious: No
  Sender: FDA-Public Use
  Company Number: A0663372A

PATIENT
  Age: 41 Year
  Sex: Male

DRUGS (3)
  1. COMBIVIR [Suspect]
     Indication: HIV INFECTION
     Dosage: 150MG TWICE PER DAY
     Route: 048
     Dates: start: 20070101
  2. KALETRA [Concomitant]
  3. UNKNOWN MEDICATION [Concomitant]

REACTIONS (1)
  - OEDEMA PERIPHERAL [None]
